FAERS Safety Report 9536736 (Version 5)
Quarter: 2014Q2

REPORT INFORMATION
  Report Type: Report from Study
  Country: FR (occurrence: FR)
  Receive Date: 20130919
  Receipt Date: 20140630
  Transmission Date: 20141212
  Serious: Yes (Death, Hospitalization)
  Sender: FDA-Public Use
  Company Number: FR-B.I. PHARMACEUTICALS,INC./RIDGEFIELD-2013-BI-28389BI

PATIENT
  Age: 72 Year
  Sex: Male
  Weight: 62 kg

DRUGS (1)
  1. BIBW 2992 [Suspect]
     Indication: SQUAMOUS CELL CARCINOMA OF LUNG
     Dosage: 40 MG
     Route: 048
     Dates: start: 20130814

REACTIONS (7)
  - General physical health deterioration [Fatal]
  - Vomiting [Unknown]
  - Dehydration [Recovered/Resolved]
  - Vomiting [Unknown]
  - Myocardial ischaemia [Unknown]
  - Nausea [Recovered/Resolved]
  - Diarrhoea [Recovered/Resolved]
